FAERS Safety Report 9325998 (Version 1)
Quarter: 2013Q2

REPORT INFORMATION
  Report Type: Spontaneous
  Country: US (occurrence: None)
  Receive Date: 20130603
  Receipt Date: 20130603
  Transmission Date: 20140414
  Serious: No
  Sender: FDA-Public Use
  Company Number: None

PATIENT
  Age: 81 Year
  Sex: Female
  Weight: 40.82 kg

DRUGS (1)
  1. CALCITONIN [Suspect]
     Route: 048

REACTIONS (2)
  - Rhinorrhoea [None]
  - Eye discharge [None]
